FAERS Safety Report 4574462-3 (Version None)
Quarter: 2005Q1

REPORT INFORMATION
  Report Type: 
  Country: None (occurrence: None)
  Receive Date: 20050204
  Receipt Date: 20050103
  Transmission Date: 20050727
  Serious: No
  Sender: FDA-Public Use
  Company Number: 2004099560

PATIENT
  Age: 74 Year
  Sex: Female
  Weight: 50.8029 kg

DRUGS (4)
  1. TOLTERODINE TARTRATE [Suspect]
     Indication: HYPERTONIC BLADDER
     Dosage: SEE IMAGE
     Route: 048
     Dates: start: 20030101
  2. TOLTERODINE TARTRATE [Suspect]
     Indication: HYPERTONIC BLADDER
     Dosage: SEE IMAGE
     Route: 048
     Dates: start: 20030301
  3. VALIUM [Concomitant]
  4. IMMODIUM (LOPERAMIDE HYDROCHLORIDE) [Concomitant]

REACTIONS (6)
  - CATHETER RELATED COMPLICATION [None]
  - HIP FRACTURE [None]
  - JOINT INJURY [None]
  - LOWER LIMB FRACTURE [None]
  - MEDICATION ERROR [None]
  - URINARY INCONTINENCE [None]
